FAERS Safety Report 14804425 (Version 3)
Quarter: 2020Q3

REPORT INFORMATION
  Report Type: Report from Study
  Country: FR (occurrence: FR)
  Receive Date: 20180425
  Receipt Date: 20180518
  Transmission Date: 20201105
  Serious: Yes (Hospitalization)
  Sender: FDA-Public Use
  Company Number: FR-ASTRAZENECA-2018SE51455

PATIENT
  Age: 19943 Day
  Sex: Female
  Weight: 70.5 kg

DRUGS (8)
  1. TREMELIMUMAB. [Suspect]
     Active Substance: TREMELIMUMAB
     Indication: COLORECTAL CANCER
     Dosage: 76 MG, EVERY CYCLE
     Route: 042
     Dates: start: 20180123
  2. FLUOXETINE [Concomitant]
     Active Substance: FLUOXETINE HYDROCHLORIDE
     Indication: DEPRESSION
  3. 5 FU [Suspect]
     Active Substance: FLUOROURACIL
     Indication: COLORECTAL CANCER
     Dosage: 3500 MG
     Route: 042
     Dates: start: 20180123
  4. OXALIPLATIN. [Suspect]
     Active Substance: OXALIPLATIN
     Indication: COLORECTAL CANCER
     Dosage: 130 MG, EVERY CYCLE
     Route: 042
     Dates: start: 20180123
  5. 5 FU [Suspect]
     Active Substance: FLUOROURACIL
     Indication: COLORECTAL CANCER
     Dosage: 700 MG, EVERY CYCLE
     Route: 040
     Dates: start: 20180123
  6. MEDI4736 [Suspect]
     Active Substance: DURVALUMAB
     Indication: COLORECTAL CANCER
     Dosage: 750 MG, EVERY CYCLE
     Route: 042
     Dates: start: 20180123
  7. ESOMEPRAZOLE. [Concomitant]
     Active Substance: ESOMEPRAZOLE MAGNESIUM
     Indication: GASTROOESOPHAGEAL REFLUX DISEASE
     Route: 048
     Dates: start: 201801
  8. CALCIUM LEVOFOLINATE [Suspect]
     Active Substance: LEVOLEUCOVORIN CALCIUM
     Indication: COLORECTAL CANCER
     Dosage: 350 MG
     Route: 042
     Dates: start: 20180123

REACTIONS (1)
  - Hepatitis toxic [Recovered/Resolved]

NARRATIVE: CASE EVENT DATE: 20180416
